FAERS Safety Report 8574254-4 (Version None)
Quarter: 2012Q3

REPORT INFORMATION
  Report Type: 
  Country: None (occurrence: None)
  Receive Date: 20120806
  Receipt Date: 20120713
  Transmission Date: 20120928
  Serious: No
  Sender: FDA-Public Use
  Company Number: US-ASTRAZENECA-2012SE43834

PATIENT
  Age: 51 Year
  Sex: Female

DRUGS (18)
  1. CALCIUM PLUS VITAMIN D [Concomitant]
  2. IBU [Concomitant]
  3. ACCUPRIL [Concomitant]
  4. MECLIZINE [Concomitant]
  5. CRESTOR [Suspect]
     Route: 048
  6. SOMA [Concomitant]
  7. LIPITOR [Concomitant]
  8. NEURONTIN [Concomitant]
  9. BACLOFEN [Concomitant]
  10. LORTAB [Concomitant]
  11. NORVASC [Concomitant]
  12. NEXIUM [Suspect]
     Route: 048
  13. PROMETHAZINE [Concomitant]
  14. HYDROCHLOROTHLAZIDE [Concomitant]
  15. METOPROLOL TARTRATE [Suspect]
     Route: 048
  16. HYOSCYAMINE [Concomitant]
  17. VITAMIN D [Concomitant]
  18. PROVENTIL HFA CFC [Concomitant]

REACTIONS (17)
  - OSTEOARTHRITIS [None]
  - VITAMIN D DEFICIENCY [None]
  - INSOMNIA [None]
  - FIBROMYALGIA [None]
  - RHINITIS ALLERGIC [None]
  - ARTHRALGIA [None]
  - HYPERTENSION [None]
  - RADICULOPATHY [None]
  - CYSTITIS NONINFECTIVE [None]
  - GASTROOESOPHAGEAL REFLUX DISEASE [None]
  - MYALGIA [None]
  - HYPERLIPIDAEMIA [None]
  - ROTATOR CUFF SYNDROME [None]
  - BACK PAIN [None]
  - MENOPAUSE [None]
  - IMPAIRED FASTING GLUCOSE [None]
  - DEPRESSION [None]
